FAERS Safety Report 9821397 (Version 1)
Quarter: 2014Q1

REPORT INFORMATION
  Report Type: Spontaneous
  Country: US (occurrence: None)
  Receive Date: 20140114
  Receipt Date: 20140114
  Transmission Date: 20141002
  Serious: Yes (Death, Hospitalization)
  Sender: FDA-Public Use
  Company Number: 2014AP000063

PATIENT
  Age: 71 Year
  Sex: Male

DRUGS (16)
  1. PAROXETINE HCL [Suspect]
     Indication: DEPRESSION
     Dates: start: 20111025, end: 20130707
  2. ODANSETRON [Suspect]
     Indication: VOMITING
     Dates: start: 20111025, end: 20130707
  3. ODANSETRON [Suspect]
     Indication: PROPHYLAXIS OF NAUSEA AND VOMITING
     Dates: start: 20111025, end: 20130707
  4. TRIFLURIDINE [Suspect]
     Indication: COLORECTAL CANCER METASTATIC
     Route: 048
     Dates: start: 20130530, end: 20130610
  5. LORAZEPAM [Suspect]
     Indication: ANXIETY
     Dates: start: 20130506, end: 20130707
  6. OXYCODONE [Suspect]
     Indication: PAIN PROPHYLAXIS
     Dates: start: 20130530, end: 20130707
  7. VITAMIN B COMPLEX [Suspect]
     Indication: VITAMIN SUPPLEMENTATION
     Dosage: PRN
     Dates: start: 20130514, end: 20130707
  8. VITAMIN B12 [Suspect]
     Indication: VITAMIN SUPPLEMENTATION
     Dosage: PRN
     Dates: start: 20111025, end: 20130707
  9. METOPROLOL [Suspect]
     Indication: HYPERTENSION
     Dates: start: 20110823, end: 20130707
  10. DIPHENOXYLATE HCL AND ATROPINE SULFATE [Suspect]
     Indication: DIARRHOEA
     Dosage: PRN
     Dates: start: 20111212, end: 20130707
  11. VITAMIN D3 [Suspect]
  12. LOVENOX [Suspect]
  13. MORPHINE [Suspect]
  14. COLACE [Suspect]
     Indication: CONSTIPATION
     Dates: start: 20130514, end: 20130707
  15. COLACE [Suspect]
     Indication: PROPHYLAXIS
     Dates: start: 20130514, end: 20130707
  16. WARFARIN SODIUM [Concomitant]

REACTIONS (8)
  - Haemorrhage intracranial [None]
  - Cardio-respiratory arrest [None]
  - Renal failure [None]
  - Acidosis [None]
  - Pulmonary embolism [None]
  - Cerebral haematoma [None]
  - Brain oedema [None]
  - Sinus disorder [None]
